FAERS Safety Report 4688414-6 (Version None)
Quarter: 2005Q2

REPORT INFORMATION
  Report Type: 
  Country: None (occurrence: None)
  Receive Date: 20050610
  Receipt Date: 20050610
  Transmission Date: 20051028
  Serious: Yes (Other)
  Sender: FDA-Public Use
  Company Number: None

PATIENT
  Age: 48 Year
  Sex: Male
  Weight: 93.8946 kg

DRUGS (1)
  1. FELODIPINE [Suspect]
     Dosage: 5MG    QD    ORAL
     Route: 048
     Dates: start: 20050520, end: 20050530

REACTIONS (3)
  - ASTHENIA [None]
  - DIZZINESS [None]
  - NAUSEA [None]
